FAERS Safety Report 25789509 (Version 2)
Quarter: 2025Q4

REPORT INFORMATION
  Report Type: Spontaneous
  Country: EU (occurrence: EU)
  Receive Date: 20250911
  Receipt Date: 20251001
  Transmission Date: 20260118
  Serious: Yes (Other)
  Sender: AMGEN
  Company Number: None

PATIENT
  Age: 77 Year
  Sex: Male
  Weight: 70 kg

DRUGS (1)
  1. TRASTUZUMAB [Suspect]
     Active Substance: TRASTUZUMAB
     Indication: Colon cancer
     Dosage: TRASTUZUMAB 6 MG/KG INTRAVENOUSLY EVERY 21 DAYS; BATCH HE3100, EXP. 02/2027
     Route: 040
     Dates: start: 20250821, end: 20250821

REACTIONS (2)
  - Infusion related hypersensitivity reaction [Recovered/Resolved]
  - Off label use [Recovered/Resolved]

NARRATIVE: CASE EVENT DATE: 20250821
